FAERS Safety Report 12715720 (Version 2)
Quarter: 2016Q4

REPORT INFORMATION
  Report Type: Spontaneous
  Country: US (occurrence: US)
  Receive Date: 20160906
  Receipt Date: 20161108
  Transmission Date: 20170207
  Serious: No
  Sender: FDA-Public Use
  Company Number: US-PFIZER INC-2016413365

PATIENT
  Age: 39 Year
  Sex: Female
  Weight: 95 kg

DRUGS (1)
  1. DEPO-PROVERA [Suspect]
     Active Substance: MEDROXYPROGESTERONE ACETATE
     Indication: MIGRAINE
     Dosage: 150 MG, EVERY 3 MONTHS(IM Q3 MONTHS)(1 INJECTION EVERY 3 MONTHS)
     Route: 030

REACTIONS (2)
  - Menorrhagia [Unknown]
  - Drug ineffective for unapproved indication [Unknown]
